FAERS Safety Report 8302996-4 (Version None)
Quarter: 2012Q2

REPORT INFORMATION
  Report Type: 
  Country: None (occurrence: None)
  Receive Date: 20120420
  Receipt Date: 20120419
  Transmission Date: 20120825
  Serious: Yes (Other)
  Sender: FDA-Public Use
  Company Number: DE-ABBOTT-12P-062-0898809-00

PATIENT
  Sex: Female

DRUGS (3)
  1. DIPYRONE TAB [Concomitant]
     Indication: PAIN
  2. VIVINOX [Concomitant]
     Indication: SLEEP DISORDER
  3. HUMIRA [Suspect]
     Indication: CROHN'S DISEASE
     Route: 058
     Dates: start: 20111201

REACTIONS (4)
  - ANOSMIA [None]
  - DEAFNESS NEUROSENSORY [None]
  - TINNITUS [None]
  - HYPOGEUSIA [None]
